FAERS Safety Report 5234646-8 (Version None)
Quarter: 2007Q1

REPORT INFORMATION
  Report Type: 
  Country: None (occurrence: None)
  Receive Date: 20070209
  Receipt Date: 20070129
  Transmission Date: 20070707
  Serious: Yes (Hospitalization)
  Sender: FDA-Public Use
  Company Number: FR-ELI_LILLY_AND_COMPANY-FR200610001698

PATIENT
  Age: 53 Year
  Sex: Male
  Weight: 85 kg

DRUGS (7)
  1. CIALIS [Suspect]
     Dosage: 1 D/F, MONTHLY (1/M)
     Route: 048
     Dates: start: 20020101
  2. ALLOPURINOL SODIUM [Concomitant]
     Dates: start: 19960101
  3. GLIMEPIRIDE [Concomitant]
     Dates: start: 19960101
  4. AMLOR [Concomitant]
     Dates: start: 19960101
  5. PERINDOPRIL ERBUMINE [Concomitant]
     Dates: start: 19960101
  6. TAHOR [Concomitant]
     Dates: start: 19960101
  7. METFORMIN HCL [Concomitant]
     Dates: start: 20030101

REACTIONS (2)
  - CYTOLYTIC HEPATITIS [None]
  - HEPATITIS CHOLESTATIC [None]
